FAERS Safety Report 18512503 (Version 1)
Quarter: 2020Q4

REPORT INFORMATION
  Report Type: Spontaneous
  Country: GB (occurrence: GB)
  Receive Date: 20201117
  Receipt Date: 20201117
  Transmission Date: 20210114
  Serious: Yes (Other)
  Sender: FDA-Public Use
  Company Number: GB-GLAXOSMITHKLINE-GB2020225262

PATIENT
  Age: 65 Year
  Sex: Female
  Weight: 73.02 kg

DRUGS (2)
  1. AVAMYS [Suspect]
     Active Substance: FLUTICASONE FUROATE
     Indication: NASAL CONGESTION
     Dosage: 2 DF, QD (PUFFS)
     Route: 055
     Dates: start: 20201022, end: 20201025
  2. VENTOLIN [Concomitant]
     Active Substance: ALBUTEROL SULFATE
     Dosage: UNK UNK, PRN (OCCASIONAL USE OF VENTOLIN WHEN REQUIRED. MAYBE TWICE A WEEK.)
     Route: 065

REACTIONS (2)
  - Depressed mood [Recovered/Resolved]
  - Feeling abnormal [Recovered/Resolved]

NARRATIVE: CASE EVENT DATE: 20201022
